FAERS Safety Report 6752879-6 (Version None)
Quarter: 2010Q2

REPORT INFORMATION
  Report Type: 
  Country: None (occurrence: None)
  Receive Date: 20100603
  Receipt Date: 20100524
  Transmission Date: 20101027
  Serious: Yes (Hospitalization)
  Sender: FDA-Public Use
  Company Number: US-SHIRE-ALL1-2010-02989

PATIENT

DRUGS (9)
  1. FOSRENOL [Suspect]
     Indication: HYPERPHOSPHATAEMIA
     Dosage: 1000 MG, OTHER (WITH EACH MEAL AND SNACK DAILY)
     Route: 048
     Dates: start: 20090101, end: 20100501
  2. AMLODIPINE [Concomitant]
     Indication: HYPERTENSION
     Dosage: 10 MG, 1X/DAY:QD
     Route: 048
     Dates: start: 20090101
  3. SUSTIVA [Concomitant]
     Indication: HIV INFECTION
     Dosage: 800 MG, 1X/DAY:QD
     Route: 048
  4. LISINOPRIL [Concomitant]
     Indication: HYPERTENSION
     Dosage: 40 MG, 1X/DAY:QD
     Route: 048
  5. METOPROLOL [Concomitant]
     Indication: HYPERTENSION
     Dosage: 50 MG, 2X/DAY:BID
     Route: 048
  6. SENSIPAR [Concomitant]
     Indication: THYROID DISORDER
     Dosage: 90 MG, 1X/DAY:QD
     Route: 048
  7. ADVIL                              /00044201/ [Concomitant]
     Indication: HIV INFECTION
     Dosage: 5 MG, UNKNOWN
     Route: 048
  8. PRENATAL VITAMINS                  /01549301/ [Concomitant]
     Indication: DRUG USE FOR UNKNOWN INDICATION
     Dosage: UNK, UNKNOWN
     Route: 065
  9. OTHER HIV MEDICATIONS [Concomitant]
     Indication: HIV INFECTION
     Dosage: UNK, UNKNOWN
     Route: 065

REACTIONS (2)
  - CARDIAC INFECTION [None]
  - MALAISE [None]
